FAERS Safety Report 9156847 (Version 1)
Quarter: 2013Q1

REPORT INFORMATION
  Report Type: Spontaneous
  Country: GB (occurrence: None)
  Receive Date: 20130206
  Receipt Date: 20130206
  Transmission Date: 20140127
  Serious: Yes (Other)
  Sender: FDA-Public Use
  Company Number: AUR-APL-2013-01122

PATIENT
  Age: 56 Year
  Sex: Male

DRUGS (8)
  1. CITALOPRAM (CITALOPRAM) [Suspect]
     Indication: DEPRESSION
     Route: 048
  2. FOLIC ACID (FOLIC ACID) [Concomitant]
  3. GLICLAZIDE (GLICLAZIDE) [Concomitant]
  4. METFORMIN (METFORMIN) [Concomitant]
  5. METHOTREXATE (METHOTREXATE) [Concomitant]
  6. OMEPRAZOLE (OMEPRAZOLE) [Concomitant]
  7. RAMIPRIL (RAMIPRIL) [Concomitant]
  8. SITAGLIPTIN (SITAGLIPTIN) [Concomitant]

REACTIONS (3)
  - Joint swelling [None]
  - Rheumatoid arthritis [None]
  - Condition aggravated [None]
